FAERS Safety Report 20704850 (Version 3)
Quarter: 2022Q2

REPORT INFORMATION
  Report Type: Report from Study
  Country: CA (occurrence: CA)
  Receive Date: 20220413
  Receipt Date: 20220512
  Transmission Date: 20220720
  Serious: Yes (Other)
  Sender: FDA-Public Use
  Company Number: CA-SA-SAC20220404000008

PATIENT
  Age: 35 Year
  Sex: Female

DRUGS (15)
  1. ALEMTUZUMAB [Suspect]
     Active Substance: ALEMTUZUMAB
     Indication: Relapsing-remitting multiple sclerosis
     Dosage: 12 MG FREQUENCY : 3 TIMES
     Route: 041
     Dates: start: 20220328, end: 20220330
  2. PEPCID [Concomitant]
     Active Substance: FAMOTIDINE
  3. SOLU-MEDROL [Concomitant]
     Active Substance: METHYLPREDNISOLONE SODIUM SUCCINATE
  4. VALACYCLOVIR [Concomitant]
     Active Substance: VALACYCLOVIR HYDROCHLORIDE
  5. BENADRYL [Concomitant]
     Active Substance: DIPHENHYDRAMINE HYDROCHLORIDE
  6. VITAMIN D NOS [Concomitant]
     Active Substance: VITAMIN D NOS
     Route: 065
  7. VITAMIN D NOS [Concomitant]
     Active Substance: VITAMIN D NOS
  8. LIOTHYRONINE [Concomitant]
     Active Substance: LIOTHYRONINE
  9. LIOTHYRONINE [Concomitant]
     Active Substance: LIOTHYRONINE
  10. SYNTHROID [Concomitant]
     Active Substance: LEVOTHYROXINE SODIUM
  11. SYNTHROID [Concomitant]
     Active Substance: LEVOTHYROXINE SODIUM
  12. CETIRIZINE HYDROCHLORIDE [Concomitant]
     Active Substance: CETIRIZINE HYDROCHLORIDE
     Dosage: UNK
  13. HERBALS\TURMERIC [Concomitant]
     Active Substance: HERBALS\TURMERIC
     Route: 065
  14. HERBALS\TURMERIC [Concomitant]
     Active Substance: HERBALS\TURMERIC
     Dosage: 075MILLIGRAM
  15. MIRENA [Concomitant]
     Active Substance: LEVONORGESTREL

REACTIONS (16)
  - Cardiac flutter [Not Recovered/Not Resolved]
  - Palpitations [Not Recovered/Not Resolved]
  - Feeling hot [Recovered/Resolved]
  - Dry mouth [Recovered/Resolved]
  - Bone pain [Not Recovered/Not Resolved]
  - Photophobia [Recovering/Resolving]
  - Pain [Recovered/Resolved]
  - Headache [Recovered/Resolved]
  - Pyrexia [Recovered/Resolved]
  - Pruritus [Recovered/Resolved]
  - Insomnia [Recovering/Resolving]
  - Headache [Recovering/Resolving]
  - Rash [Recovered/Resolved]
  - Dyspnoea [Not Recovered/Not Resolved]
  - Throat tightness [Not Recovered/Not Resolved]
  - Urticaria [Not Recovered/Not Resolved]

NARRATIVE: CASE EVENT DATE: 20220101
